FAERS Safety Report 23982146 (Version 3)
Quarter: 2025Q2

REPORT INFORMATION
  Report Type: Spontaneous
  Country: JP (occurrence: JP)
  Receive Date: 20240617
  Receipt Date: 20250523
  Transmission Date: 20250716
  Serious: Yes (Death, Other)
  Sender: BRISTOL-MYERS SQUIBB COMPANY
  Company Number: JP-ONO-2024JP012688

PATIENT

DRUGS (1)
  1. OPDIVO [Suspect]
     Active Substance: NIVOLUMAB
     Indication: Transitional cell carcinoma
     Route: 041
     Dates: start: 2024

REACTIONS (4)
  - Urinary tract infection [Fatal]
  - Diarrhoea [Fatal]
  - Gastrointestinal perforation [Unknown]
  - Immune-mediated enterocolitis [Unknown]
